FAERS Safety Report 26106537 (Version 1)
Quarter: 2025Q4

REPORT INFORMATION
  Report Type: Report from Study
  Country: JP (occurrence: JP)
  Receive Date: 20251201
  Receipt Date: 20251201
  Transmission Date: 20260117
  Serious: Yes (Death, Life-Threatening, Hospitalization)
  Sender: AMGEN
  Company Number: JP-KISSEI-TV20251163_P_1

PATIENT
  Age: 80 Year
  Sex: Female
  Weight: 37.8 kg

DRUGS (25)
  1. AVACOPAN [Suspect]
     Active Substance: AVACOPAN
     Indication: Microscopic polyangiitis
     Dosage: 30 MG
     Route: 048
     Dates: start: 20230907, end: 20251004
  2. PREDNISOLONE [Concomitant]
     Active Substance: PREDNISOLONE
     Indication: Microscopic polyangiitis
     Dosage: 8 MG
     Route: 048
     Dates: start: 20231120, end: 20240128
  3. PREDNISOLONE [Concomitant]
     Active Substance: PREDNISOLONE
     Dosage: 7.5 MG
     Route: 048
     Dates: start: 20240129, end: 20240407
  4. PREDNISOLONE [Concomitant]
     Active Substance: PREDNISOLONE
     Dosage: 7 MG
     Route: 048
     Dates: start: 20240408, end: 20240901
  5. PREDNISOLONE [Concomitant]
     Active Substance: PREDNISOLONE
     Dosage: 6.5 MG
     Route: 048
     Dates: start: 20240902, end: 20241110
  6. PREDNISOLONE [Concomitant]
     Active Substance: PREDNISOLONE
     Dosage: 7 MG
     Route: 048
     Dates: start: 20241111, end: 20250220
  7. PREDNISOLONE [Concomitant]
     Active Substance: PREDNISOLONE
     Dosage: 6 MG
     Route: 048
     Dates: start: 20250221, end: 20250630
  8. PREDNISOLONE [Concomitant]
     Active Substance: PREDNISOLONE
     Dosage: 40 MG
     Route: 048
     Dates: start: 20250701, end: 20250718
  9. PREDNISOLONE [Concomitant]
     Active Substance: PREDNISOLONE
     Dosage: 35 MG
     Route: 048
     Dates: start: 20250719, end: 20250730
  10. PREDNISOLONE [Concomitant]
     Active Substance: PREDNISOLONE
     Dosage: 25 MG
     Route: 048
     Dates: start: 20250731, end: 20250812
  11. PREDNISOLONE [Concomitant]
     Active Substance: PREDNISOLONE
     Dosage: 20 MG
     Route: 048
     Dates: start: 20250813, end: 20250826
  12. PREDNISOLONE [Concomitant]
     Active Substance: PREDNISOLONE
     Dosage: 15 MG
     Route: 048
     Dates: start: 20250827, end: 20251013
  13. PREDNISOLONE [Concomitant]
     Active Substance: PREDNISOLONE
     Dosage: 25 MG
     Route: 048
     Dates: start: 20251017, end: 20251022
  14. PREDNISOLONE [Concomitant]
     Active Substance: PREDNISOLONE
     Dosage: 20 MG
     Route: 048
     Dates: start: 20251023, end: 20251103
  15. PREDNISOLONE [Concomitant]
     Active Substance: PREDNISOLONE
     Dosage: 15 MG
     Route: 048
     Dates: start: 20251104, end: 20251105
  16. RITUXIMAB [Concomitant]
     Active Substance: RITUXIMAB
     Indication: Microscopic polyangiitis
     Dosage: 450 MG
     Route: 040
     Dates: start: 20230908, end: 20230908
  17. RITUXIMAB [Concomitant]
     Active Substance: RITUXIMAB
     Dosage: 450 MG
     Route: 040
     Dates: start: 20230915, end: 20230915
  18. RITUXIMAB [Concomitant]
     Active Substance: RITUXIMAB
     Dosage: 450 MG
     Route: 040
     Dates: start: 20230922, end: 20230922
  19. RITUXIMAB [Concomitant]
     Active Substance: RITUXIMAB
     Dosage: 450 MG
     Route: 040
     Dates: start: 20230929, end: 20230929
  20. RITUXIMAB [Concomitant]
     Active Substance: RITUXIMAB
     Dosage: 450 MG
     Route: 040
     Dates: start: 20240305, end: 20240305
  21. RITUXIMAB [Concomitant]
     Active Substance: RITUXIMAB
     Dosage: 470 MG
     Route: 040
     Dates: start: 20240903, end: 20240903
  22. SULFAMETHOXAZOLE\TRIMETHOPRIM [Concomitant]
     Active Substance: SULFAMETHOXAZOLE\TRIMETHOPRIM
     Indication: Antifungal prophylaxis
     Dosage: 200 MG
     Route: 048
     Dates: start: 20230915, end: 20251105
  23. CYCLOPHOSPHAMIDE [Concomitant]
     Active Substance: CYCLOPHOSPHAMIDE
     Indication: Microscopic polyangiitis
     Dosage: 600 MG
     Route: 040
     Dates: start: 20250703, end: 20250703
  24. CYCLOPHOSPHAMIDE [Concomitant]
     Active Substance: CYCLOPHOSPHAMIDE
     Dosage: 600 MG
     Route: 040
     Dates: start: 20250717, end: 20250717
  25. CYCLOPHOSPHAMIDE [Concomitant]
     Active Substance: CYCLOPHOSPHAMIDE
     Dosage: 600 MG
     Route: 040
     Dates: start: 20250731, end: 20250731

REACTIONS (7)
  - Atypical mycobacterial infection [Fatal]
  - Bacteraemia [Fatal]
  - Pneumonia [Fatal]
  - Pneumonia bacterial [Not Recovered/Not Resolved]
  - Bronchopulmonary aspergillosis [Not Recovered/Not Resolved]
  - Urinary tract infection [Recovering/Resolving]
  - Hepatic function abnormal [Unknown]

NARRATIVE: CASE EVENT DATE: 20230101
